FAERS Safety Report 20810031 (Version 2)
Quarter: 2022Q2

REPORT INFORMATION
  Report Type: Spontaneous
  Country: KR (occurrence: KR)
  Receive Date: 20220510
  Receipt Date: 20220516
  Transmission Date: 20220721
  Serious: Yes (Other)
  Sender: FDA-Public Use
  Company Number: KR-MLMSERVICE-20220427-3524074-2

PATIENT
  Age: 38 Year
  Sex: Male

DRUGS (1)
  1. DOXYCYCLINE [Suspect]
     Active Substance: DOXYCYCLINE
     Indication: Acne
     Dosage: UNK
     Route: 048

REACTIONS (3)
  - Overgrowth bacterial [Recovering/Resolving]
  - Clostridial infection [Recovering/Resolving]
  - Dysbiosis [Unknown]
